FAERS Safety Report 5626833-1 (Version None)
Quarter: 2008Q1

REPORT INFORMATION
  Report Type: 
  Country: None (occurrence: None)
  Receive Date: 20080212
  Receipt Date: 20080131
  Transmission Date: 20080703
  Serious: Yes (Disabling)
  Sender: FDA-Public Use
  Company Number: GXKR2008US01312

PATIENT
  Age: 39 Year
  Sex: Male

DRUGS (1)
  1. CITALOPRAM HYDROBROMIDE [Suspect]
     Indication: MAJOR DEPRESSION
     Dosage: 20 MG, QD
     Dates: start: 20020101, end: 20040101

REACTIONS (6)
  - ANORGASMIA [None]
  - ERECTILE DYSFUNCTION [None]
  - HYPOAESTHESIA OF GENITAL MALE [None]
  - LOSS OF LIBIDO [None]
  - ORGASMIC SENSATION DECREASED [None]
  - SEXUAL DYSFUNCTION [None]
